FAERS Safety Report 5927912-1 (Version None)
Quarter: 2008Q4

REPORT INFORMATION
  Report Type: 
  Country: None (occurrence: None)
  Receive Date: 20081022
  Receipt Date: 20081022
  Transmission Date: 20090506
  Serious: Yes (Other)
  Sender: FDA-Public Use
  Company Number: None

PATIENT
  Sex: Male
  Weight: 64.6 kg

DRUGS (1)
  1. IRON-DEXTRAN COMPLEX INJ [Suspect]
     Dosage: 100MG IV
     Route: 042
     Dates: start: 20081011, end: 20081011

REACTIONS (3)
  - ANGINA PECTORIS [None]
  - ANXIETY [None]
  - HYPERVENTILATION [None]
